FAERS Safety Report 21463542 (Version 3)
Quarter: 2023Q4

REPORT INFORMATION
  Report Type: Report from Study
  Country: US (occurrence: US)
  Receive Date: 20221017
  Receipt Date: 20231008
  Transmission Date: 20240109
  Serious: Yes (Hospitalization, Other)
  Sender: FDA-Public Use
  Company Number: US-ABBVIE-4157370

PATIENT
  Sex: Male

DRUGS (4)
  1. HUMIRA [Suspect]
     Active Substance: ADALIMUMAB
     Indication: Crohn^s disease
     Route: 058
  2. HUMIRA [Suspect]
     Active Substance: ADALIMUMAB
     Route: 058
     Dates: start: 202207, end: 202208
  3. MODERNA COVID-19 VACCINE [Concomitant]
     Active Substance: ELASOMERAN
     Indication: COVID-19 immunisation
     Dosage: TIME INTERVAL: TOTAL
     Route: 030
  4. MODERNA COVID-19 VACCINE [Concomitant]
     Active Substance: ELASOMERAN
     Indication: COVID-19 immunisation
     Dosage: TIME INTERVAL: TOTAL: BOOSTER DOSE
     Route: 030

REACTIONS (14)
  - Anal incontinence [Unknown]
  - Mass [Unknown]
  - Crohn^s disease [Unknown]
  - Anxiety [Unknown]
  - Frequent bowel movements [Unknown]
  - Decreased appetite [Not Recovered/Not Resolved]
  - Panic attack [Unknown]
  - Therapeutic product effect incomplete [Unknown]
  - Spinal fracture [Unknown]
  - Muscle tightness [Unknown]
  - Ulcer [Unknown]
  - Cardiac disorder [Unknown]
  - Blood iron decreased [Unknown]
  - Malaise [Not Recovered/Not Resolved]

NARRATIVE: CASE EVENT DATE: 20220101
